FAERS Safety Report 5015452-6 (Version None)
Quarter: 2006Q2

REPORT INFORMATION
  Report Type: 
  Country: None (occurrence: None)
  Receive Date: 20060601
  Receipt Date: 20060522
  Transmission Date: 20061013
  Serious: Yes (Hospitalization)
  Sender: FDA-Public Use
  Company Number: IT-BRISTOL-MYERS SQUIBB COMPANY-13385240

PATIENT
  Age: 77 Year
  Sex: Female

DRUGS (8)
  1. CISPLATIN [Suspect]
     Indication: HEPATIC NEOPLASM MALIGNANT
  2. PHARMORUBICIN [Suspect]
     Indication: HEPATIC NEOPLASM MALIGNANT
  3. LIPIODOL [Suspect]
     Indication: HEPATIC NEOPLASM MALIGNANT
  4. POLYVINYL ALCOHOL [Suspect]
     Indication: HEPATIC NEOPLASM MALIGNANT
  5. OMEPRAZOLE [Concomitant]
  6. CEFTAZIDIME [Concomitant]
  7. LISINOPRIL [Concomitant]
  8. ISOSORBIDE MONONITRATE [Concomitant]

REACTIONS (1)
  - GASTRIC ULCER [None]
